FAERS Safety Report 24229124 (Version 2)
Quarter: 2025Q1

REPORT INFORMATION
  Report Type: Report from Study
  Country: DE (occurrence: DE)
  Receive Date: 20240820
  Receipt Date: 20250328
  Transmission Date: 20250409
  Serious: No
  Sender: TAKEDA
  Company Number: DE-TAKEDA-2024TUS082907

PATIENT
  Age: 61 Year
  Sex: Male

DRUGS (27)
  1. TEDUGLUTIDE [Suspect]
     Active Substance: TEDUGLUTIDE
     Indication: Short-bowel syndrome
     Dosage: 3.65 MILLIGRAM, QD
     Dates: start: 20160825, end: 201702
  2. TEDUGLUTIDE [Suspect]
     Active Substance: TEDUGLUTIDE
     Dosage: 3.85 MILLIGRAM, QD
     Dates: start: 201702
  3. TEDUGLUTIDE [Suspect]
     Active Substance: TEDUGLUTIDE
  4. TEDUGLUTIDE [Suspect]
     Active Substance: TEDUGLUTIDE
  5. PROPOFOL [Concomitant]
     Active Substance: PROPOFOL
     Dosage: 500 MILLIGRAM, QD
     Dates: start: 20240803, end: 20240803
  6. PROPOFOL [Concomitant]
     Active Substance: PROPOFOL
     Dosage: 550 MILLIGRAM, QD
     Dates: start: 20240808, end: 20240808
  7. CYANOCOBALAMIN [Concomitant]
     Active Substance: CYANOCOBALAMIN
     Indication: Vitamin B12 deficiency
     Dosage: 10 MICROGRAM, QD
     Dates: start: 20230224, end: 2023
  8. MAGNESIUM [Concomitant]
     Active Substance: MAGNESIUM
     Indication: Magnesium deficiency
     Dosage: UNK UNK, BID
     Dates: start: 20230222
  9. CHOLESTYRAMINE [Concomitant]
     Active Substance: CHOLESTYRAMINE
     Indication: Bile acid malabsorption
     Dosage: 4 GRAM, QID
  10. CHOLESTYRAMINE [Concomitant]
     Active Substance: CHOLESTYRAMINE
     Indication: Bile acids
     Dosage: 4 GRAM, TID
     Dates: start: 20210830
  11. CHOLECALCIFEROL [Concomitant]
     Active Substance: CHOLECALCIFEROL
     Indication: Vitamin supplementation
     Dosage: 1000.00 INTERNATIONAL UNIT, QD
  12. CHOLECALCIFEROL [Concomitant]
     Active Substance: CHOLECALCIFEROL
     Indication: Vitamin D deficiency
  13. EBASTINE [Concomitant]
     Active Substance: EBASTINE
     Indication: Multiple allergies
     Dosage: UNK UNK, QD
  14. SPIRIVA [Concomitant]
     Active Substance: TIOTROPIUM BROMIDE MONOHYDRATE
     Indication: Chronic obstructive pulmonary disease
     Dosage: UNK UNK, QD
  15. SYMBICORT [Concomitant]
     Active Substance: BUDESONIDE\FORMOTEROL FUMARATE DIHYDRATE
     Indication: Chronic obstructive pulmonary disease
     Dosage: UNK UNK, BID
  16. RAMIPRIL [Concomitant]
     Active Substance: RAMIPRIL
     Indication: Hypertension
     Dosage: 2.50 MILLIGRAM, QD
  17. CLOPIDOGREL [Concomitant]
     Active Substance: CLOPIDOGREL BISULFATE
     Indication: Thrombosis
     Dosage: 75.00 MILLIGRAM, QD
  18. CLOPIDOGREL [Concomitant]
     Active Substance: CLOPIDOGREL BISULFATE
     Indication: Prophylaxis
  19. LOPERAMIDE [Concomitant]
     Active Substance: LOPERAMIDE
     Indication: Diarrhoea
     Dosage: 2.00 MILLIGRAM, QID
  20. ALBUTEROL [Concomitant]
     Active Substance: ALBUTEROL
     Indication: Chronic obstructive pulmonary disease
     Dosage: 0.10 MILLIGRAM, QD
  21. BECLOMETHASONE DIPROPIONATE [Concomitant]
     Active Substance: BECLOMETHASONE DIPROPIONATE
     Indication: Chronic obstructive pulmonary disease
     Dosage: UNK UNK, QD
  22. BONVIVA [Concomitant]
     Active Substance: IBANDRONATE SODIUM
     Indication: Osteoporosis
  23. FENTANYL [Concomitant]
     Active Substance: FENTANYL
     Indication: Pain
  24. Novalgin [Concomitant]
     Indication: Pain
  25. ESOMEPRAZOLE [Concomitant]
     Active Substance: ESOMEPRAZOLE
     Indication: Gastric pH decreased
     Dosage: 40 MILLIGRAM, BID
     Dates: start: 20210924
  26. DENOSUMAB [Concomitant]
     Active Substance: DENOSUMAB
  27. PANTOPRAZOLE [Concomitant]
     Active Substance: PANTOPRAZOLE
     Indication: Gastric pH decreased
     Dosage: 20 UNK, QD
     Dates: start: 20221116

REACTIONS (2)
  - Intestinal mucosal hypertrophy [Not Recovered/Not Resolved]
  - Gastric polyps [Recovered/Resolved]

NARRATIVE: CASE EVENT DATE: 20240808
